FAERS Safety Report 20074346 (Version 1)
Quarter: 2021Q4

REPORT INFORMATION
  Report Type: Spontaneous
  Country: US (occurrence: US)
  Receive Date: 20211116
  Receipt Date: 20211116
  Transmission Date: 20220303
  Serious: No
  Sender: FDA-Public Use
  Company Number: US-PFIZER INC-202101488240

PATIENT
  Age: 74 Year
  Sex: Female

DRUGS (2)
  1. XELJANZ [Suspect]
     Active Substance: TOFACITINIB CITRATE
     Indication: Rheumatoid arthritis
     Dosage: 10 MG, 1X/DAY (ONCE DAILY FOR A ^COUPLE OF MONTHS LAST YEAR^)
  2. XELJANZ [Suspect]
     Active Substance: TOFACITINIB CITRATE
     Dosage: 5 MG, 2X/DAY (1 TAB TWICE DAILY)
     Route: 048
     Dates: start: 2021, end: 2021

REACTIONS (2)
  - Upper respiratory tract infection [Unknown]
  - Gastrointestinal disorder [Unknown]
